FAERS Safety Report 6906981-6 (Version None)
Quarter: 2010Q3

REPORT INFORMATION
  Report Type: 
  Country: None (occurrence: None)
  Receive Date: 20100804
  Receipt Date: 20080111
  Transmission Date: 20110219
  Serious: No
  Sender: FDA-Public Use
  Company Number: US-PFIZER INC-2008003746

PATIENT
  Sex: Female
  Weight: 56.818 kg

DRUGS (4)
  1. NARDIL [Suspect]
     Indication: ANXIETY
     Dates: start: 19870101
  2. NARDIL [Suspect]
     Indication: DEPRESSION
  3. LAMICTAL [Concomitant]
     Indication: DEPRESSION
  4. KLONOPIN [Concomitant]
     Indication: ANXIETY

REACTIONS (5)
  - DIZZINESS [None]
  - DRY MOUTH [None]
  - HUNGER [None]
  - OEDEMA [None]
  - WEIGHT INCREASED [None]
